FAERS Safety Report 8168398-9 (Version None)
Quarter: 2012Q1

REPORT INFORMATION
  Report Type: 
  Country: None (occurrence: None)
  Receive Date: 20120227
  Receipt Date: 20120217
  Transmission Date: 20120608
  Serious: Yes (Other)
  Sender: FDA-Public Use
  Company Number: JP-MERCK-1202USA03529

PATIENT
  Sex: Female

DRUGS (1)
  1. JANUVIA [Suspect]
     Indication: TYPE 2 DIABETES MELLITUS
     Route: 048
     Dates: start: 20110101

REACTIONS (3)
  - WHITE BLOOD CELL COUNT INCREASED [None]
  - LYMPHOMA [None]
  - LYMPHOCYTE COUNT INCREASED [None]
